FAERS Safety Report 7502519-3 (Version None)
Quarter: 2011Q1

REPORT INFORMATION
  Report Type: 
  Country: None (occurrence: None)
  Receive Date: 20110318
  Receipt Date: 20100415
  Transmission Date: 20110831
  Serious: No
  Sender: FDA-Public Use
  Company Number: 2010SP021957

PATIENT

DRUGS (2)
  1. REBETOL [Suspect]
     Indication: PRODUCT USED FOR UNKNOWN INDICATION
     Dosage: PO
     Route: 048
  2. PEG-INTRON [Suspect]
     Indication: PRODUCT USED FOR UNKNOWN INDICATION

REACTIONS (6)
  - INSOMNIA [None]
  - DEHYDRATION [None]
  - PRURITUS [None]
  - GLOMERULAR FILTRATION RATE DECREASED [None]
  - DECREASED APPETITE [None]
  - BLOOD CREATININE INCREASED [None]
